FAERS Safety Report 4532345-9 (Version None)
Quarter: 2004Q4

REPORT INFORMATION
  Report Type: 
  Country: None (occurrence: None)
  Receive Date: 20041206
  Receipt Date: 20041025
  Transmission Date: 20050328
  Serious: No
  Sender: FDA-Public Use
  Company Number: US_0411107770

PATIENT
  Sex: Female

DRUGS (2)
  1. CYMBALTA [Suspect]
     Indication: PANIC DISORDER
     Dosage: 60 MG
     Dates: start: 20040801
  2. PROZAC [Suspect]

REACTIONS (2)
  - ANXIETY [None]
  - DRUG INEFFECTIVE [None]
